FAERS Safety Report 12105695 (Version 2)
Quarter: 2016Q2

REPORT INFORMATION
  Report Type: Spontaneous
  Country: DE (occurrence: DE)
  Receive Date: 20160223
  Receipt Date: 20160513
  Transmission Date: 20160815
  Serious: Yes (Life-Threatening, Hospitalization)
  Sender: FDA-Public Use
  Company Number: DE-ELI_LILLY_AND_COMPANY-DE201602006326

PATIENT
  Age: 20 Year
  Sex: Female

DRUGS (2)
  1. ABASAGLAR [Suspect]
     Active Substance: INSULIN GLARGINE
     Indication: TYPE 1 DIABETES MELLITUS
     Dosage: 30 IU, IN THE EVENING
     Route: 058
     Dates: start: 20160203, end: 20160213
  2. HUMALOG [Concomitant]
     Active Substance: INSULIN LISPRO
     Indication: TYPE 1 DIABETES MELLITUS
     Dosage: UNK, ACCORDING TO INTAKE OF CARBOHYDRATES
     Route: 065

REACTIONS (7)
  - Hypersensitivity [Recovered/Resolved]
  - Hyperventilation [Unknown]
  - Nervousness [Unknown]
  - Loss of consciousness [Not Recovered/Not Resolved]
  - Hyperglycaemia [Recovered/Resolved]
  - Angioedema [Recovered/Resolved]
  - Fall [Unknown]

NARRATIVE: CASE EVENT DATE: 20160212
